FAERS Safety Report 12935649 (Version 1)
Quarter: 2016Q4

REPORT INFORMATION
  Report Type: Spontaneous
  Country: US (occurrence: US)
  Receive Date: 20161114
  Receipt Date: 20161114
  Transmission Date: 20170207
  Serious: No
  Sender: FDA-Public Use
  Company Number: US-009507513-1611USA000081

PATIENT
  Age: 30 Year
  Sex: Female
  Weight: 68.03 kg

DRUGS (3)
  1. NEXPLANON [Suspect]
     Active Substance: ETONOGESTREL
     Indication: CONTRACEPTION
     Dosage: 1 SINGLE ROD, UNK
     Route: 059
     Dates: start: 20150520
  2. MAGNESIUM (UNSPECIFIED) [Concomitant]
     Active Substance: MAGNESIUM
  3. EFFEXOR [Concomitant]
     Active Substance: VENLAFAXINE HYDROCHLORIDE

REACTIONS (3)
  - Disturbance in attention [Recovered/Resolved]
  - Device breakage [Recovered/Resolved]
  - Fall [Recovered/Resolved]

NARRATIVE: CASE EVENT DATE: 201609
